FAERS Safety Report 18224192 (Version 3)
Quarter: 2020Q4

REPORT INFORMATION
  Report Type: Report from Study
  Country: US (occurrence: US)
  Receive Date: 20200902
  Receipt Date: 20201007
  Transmission Date: 20210113
  Serious: Yes (Hospitalization)
  Sender: FDA-Public Use
  Company Number: NVSC2020US234043

PATIENT
  Sex: Female

DRUGS (1)
  1. KISQALI [Suspect]
     Active Substance: RIBOCICLIB
     Indication: PRODUCT USED FOR UNKNOWN INDICATION
     Dosage: UNK
     Route: 048

REACTIONS (7)
  - Nausea [Unknown]
  - Dysphagia [Unknown]
  - Product dose omission issue [Unknown]
  - Back pain [Unknown]
  - Respiration abnormal [Unknown]
  - Asthenia [Unknown]
  - Pain [Unknown]
